FAERS Safety Report 20702934 (Version 1)
Quarter: 2022Q2

REPORT INFORMATION
  Report Type: Spontaneous
  Country: DK (occurrence: DK)
  Receive Date: 20220413
  Receipt Date: 20220413
  Transmission Date: 20220720
  Serious: Yes (Hospitalization, Other)
  Sender: FDA-Public Use
  Company Number: DK-VALIDUS PHARMACEUTICALS LLC-DK-VDP-2022-015360

PATIENT

DRUGS (4)
  1. FUROSEMIDE [Suspect]
     Active Substance: FUROSEMIDE
     Indication: Diuretic therapy
     Dosage: DOSE INCREASED FROM 40 MG IN DEC2021. STRENGTH: 40 MG
     Route: 048
     Dates: start: 20200803
  2. METOPROLOL SUCCINATE [Suspect]
     Active Substance: METOPROLOL SUCCINATE
     Indication: Cardiac failure
     Dosage: DOSE INCREASED FROM 100 MG DEC2021 NO. OF SEPARAT DOSAGES UNKNOWN. STRENGTH BETWEEN 50 AND 100 MG
     Route: 048
     Dates: start: 20190329
  3. DIGOXIN [Suspect]
     Active Substance: DIGOXIN
     Indication: Heart rate irregular
     Dosage: 125 MICROGRAM, QD
     Route: 048
     Dates: start: 202112, end: 202203
  4. BETAKLAV [AMOXICILLIN SODIUM;CLAVULANATE POTASSIUM] [Concomitant]
     Indication: Sialoadenitis
     Dosage: UNK
     Route: 065
     Dates: start: 20220128, end: 20220307

REACTIONS (4)
  - Bradycardia [Unknown]
  - Hypotension [Unknown]
  - Fall [Unknown]
  - Dizziness [Unknown]

NARRATIVE: CASE EVENT DATE: 20211227
